FAERS Safety Report 26089576 (Version 1)
Quarter: 2025Q4

REPORT INFORMATION
  Report Type: Spontaneous
  Country: TR (occurrence: TR)
  Receive Date: 20251125
  Receipt Date: 20251125
  Transmission Date: 20260117
  Serious: Yes (Hospitalization, Other)
  Sender: GENBIOPRO
  Company Number: US-GENBIOPRO-2025GEN00016

PATIENT
  Sex: Female

DRUGS (1)
  1. MISOPROSTOL [Suspect]
     Active Substance: MISOPROSTOL
     Indication: Cervical dilatation
     Dosage: UNK
     Route: 065

REACTIONS (2)
  - Urinary bladder rupture [Unknown]
  - Uterine rupture [Unknown]
